FAERS Safety Report 10241292 (Version 1)
Quarter: 2014Q2

REPORT INFORMATION
  Report Type: Spontaneous
  Country: US (occurrence: US)
  Receive Date: 20140617
  Receipt Date: 20140617
  Transmission Date: 20141212
  Serious: No
  Sender: FDA-Public Use
  Company Number: US-PFIZER INC-2014162809

PATIENT
  Age: 81 Year
  Sex: Female

DRUGS (6)
  1. PREMARIN [Suspect]
     Dosage: UNK
  2. PREDNISONE [Suspect]
     Dosage: UNK
  3. LISINOPRIL [Suspect]
     Dosage: UNK
  4. ACTONEL [Suspect]
     Dosage: UNK
  5. ALEVE [Suspect]
     Dosage: UNK
  6. OXYBUTYNIN [Suspect]
     Dosage: UNK

REACTIONS (1)
  - Drug hypersensitivity [Unknown]
